FAERS Safety Report 5076777-1 (Version None)
Quarter: 2006Q3

REPORT INFORMATION
  Report Type: 
  Country: None (occurrence: None)
  Receive Date: 20060810
  Receipt Date: 20060802
  Transmission Date: 20061208
  Serious: Yes (Hospitalization)
  Sender: FDA-Public Use
  Company Number: PHRM2006FR02244

PATIENT
  Age: 6 Year
  Sex: Male
  Weight: 24 kg

DRUGS (4)
  1. TRILEPTAL [Suspect]
     Indication: COMPLEX PARTIAL SEIZURES
     Dosage: 30MG/KG/DAY
     Route: 048
     Dates: start: 20060201, end: 20060316
  2. FLIXOTIDE [Concomitant]
  3. PRIMALAN [Concomitant]
     Route: 048
  4. VENTOLIN [Concomitant]

REACTIONS (6)
  - BALANCE DISORDER [None]
  - DIPLOPIA [None]
  - FALL [None]
  - HEADACHE [None]
  - MALAISE [None]
  - TREMOR [None]
